FAERS Safety Report 7041630-0 (Version None)
Quarter: 2010Q4

REPORT INFORMATION
  Report Type: 
  Country: None (occurrence: None)
  Receive Date: 20101013
  Receipt Date: 20090922
  Transmission Date: 20110411
  Serious: No
  Sender: FDA-Public Use
  Company Number: US-ASTRAZENECA-2009SE14658

PATIENT
  Age: 62 Year
  Sex: Female
  Weight: 73.5 kg

DRUGS (6)
  1. SYMBICORT [Suspect]
     Indication: ASTHMA
     Route: 055
     Dates: start: 20090101, end: 20090101
  2. RAMIPRIL [Concomitant]
     Indication: CARDIAC DISORDER
  3. LEVOTHYROXINE [Concomitant]
     Indication: THYROID DISORDER
  4. OMEPRAZOLE [Concomitant]
  5. LISINOPRIL [Concomitant]
  6. SINGULAIR [Concomitant]

REACTIONS (3)
  - DIZZINESS [None]
  - DYSPNOEA [None]
  - INFLUENZA LIKE ILLNESS [None]
